FAERS Safety Report 8759488 (Version 1)
Quarter: 2012Q4

REPORT INFORMATION
  Report Type: 
  Country: GB (occurrence: GB)
  Receive Date: 20120829
  Receipt Date: 20120829
  Transmission Date: 20130627
  Serious: Yes (Hospitalization, Other)
  Sender: FDA-Public Use
  Company Number: GB-MERCK SHARP  DOHME-1206USA05503

PATIENT

DRUGS (12)
  1. ZOCOR [Suspect]
     Indication: BLOOD CHOLESTEROL INCREASED
     Dosage: 40 mg, UNK
     Route: 048
     Dates: start: 20120515, end: 20120515
  2. ZOCOR [Suspect]
     Indication: BLOOD TRIGLYCERIDES INCREASED
  3. ACYCLOVIR [Concomitant]
  4. CYCLOSPORINE [Concomitant]
  5. TRIMOXAZOLE [Concomitant]
  6. ITRACONAZOLE [Concomitant]
  7. MYCOPHENOLATE MOFETIL [Concomitant]
  8. PRILOSEC [Concomitant]
  9. PENICILLIN V [Concomitant]
  10. MK-9350 [Concomitant]
  11. QUININE SULFATE [Concomitant]
  12. TILDIEM LA [Concomitant]

REACTIONS (4)
  - Chromaturia [Unknown]
  - Hypokinesia [Unknown]
  - Myalgia [Unknown]
  - Rhabdomyolysis [Recovering/Resolving]
